FAERS Safety Report 7434309-4 (Version None)
Quarter: 2011Q2

REPORT INFORMATION
  Report Type: 
  Country: None (occurrence: None)
  Receive Date: 20110425
  Receipt Date: 20110419
  Transmission Date: 20111010
  Serious: No
  Sender: FDA-Public Use
  Company Number: US-PFIZER INC-2011085828

PATIENT
  Sex: Male

DRUGS (2)
  1. NORVASC [Suspect]
     Indication: ATRIAL FIBRILLATION
     Dosage: UNK
  2. NORVASC [Suspect]
     Indication: HYPERTENSION

REACTIONS (1)
  - OEDEMA PERIPHERAL [None]
